FAERS Safety Report 10262833 (Version 2)
Quarter: 2014Q2

REPORT INFORMATION
  Report Type: Report from Study
  Country: US (occurrence: US)
  Receive Date: 20140626
  Receipt Date: 20140626
  Transmission Date: 20141212
  Serious: Yes (Death)
  Sender: FDA-Public Use
  Company Number: US-MYLANLABS-2013S1018414

PATIENT
  Age: 81 Year
  Sex: Male

DRUGS (1)
  1. CLOZAPINE TABLETS [Suspect]
     Route: 048
     Dates: start: 201204, end: 2013

REACTIONS (2)
  - Parkinson^s disease [Fatal]
  - Colon cancer [Fatal]
